FAERS Safety Report 6306888-1 (Version None)
Quarter: 2009Q3

REPORT INFORMATION
  Report Type: 
  Country: None (occurrence: None)
  Receive Date: 20090811
  Receipt Date: 20090811
  Transmission Date: 20100115
  Serious: Yes (Other)
  Sender: FDA-Public Use
  Company Number: None

PATIENT
  Age: 74 Month
  Sex: Female
  Weight: 63.5036 kg

DRUGS (1)
  1. CARDIZEM CD [Suspect]
     Dosage: OTIC

REACTIONS (1)
  - ALOPECIA [None]
